FAERS Safety Report 7098036-8 (Version None)
Quarter: 2010Q4

REPORT INFORMATION
  Report Type: 
  Country: None (occurrence: None)
  Receive Date: 20101103
  Receipt Date: 20101021
  Transmission Date: 20110411
  Serious: Yes (Death, Other)
  Sender: FDA-Public Use
  Company Number: 2010AP001416

PATIENT
  Sex: Female

DRUGS (2)
  1. SERTRALINE HYDROCHLORIDE [Suspect]
     Indication: PRODUCT USED FOR UNKNOWN INDICATION
     Dosage: 100 MG; TRPL
     Route: 064
  2. CIPRALEX (ESCITALOPRAM OXALATE)  /GFR/ [Suspect]
     Dosage: 20 MG;TRPL
     Route: 064

REACTIONS (5)
  - BREECH PRESENTATION [None]
  - FOETAL DISORDER [None]
  - HYPOXIC-ISCHAEMIC ENCEPHALOPATHY [None]
  - INTRA-UTERINE DEATH [None]
  - MATERNAL DRUGS AFFECTING FOETUS [None]
